FAERS Safety Report 9630320 (Version 1)
Quarter: 2013Q4

REPORT INFORMATION
  Report Type: Spontaneous
  Country: US (occurrence: US)
  Receive Date: 20131018
  Receipt Date: 20131018
  Transmission Date: 20140711
  Serious: No
  Sender: FDA-Public Use
  Company Number: US-009507513-1310USA007606

PATIENT
  Sex: Male

DRUGS (4)
  1. JANUMET XR [Suspect]
     Indication: DIABETES MELLITUS
     Dosage: UNK
     Route: 048
     Dates: start: 201206
  2. JANUVIA [Suspect]
     Route: 048
  3. JANUMET [Suspect]
     Route: 048
  4. LEVEMIR [Concomitant]

REACTIONS (1)
  - Blood glucose abnormal [Unknown]
